FAERS Safety Report 4699156-5 (Version None)
Quarter: 2005Q2

REPORT INFORMATION
  Report Type: 
  Country: None (occurrence: None)
  Receive Date: 20050622
  Receipt Date: 20050622
  Transmission Date: 20051028
  Serious: Yes (Other)
  Sender: FDA-Public Use
  Company Number: None

PATIENT
  Age: 46 Year
  Sex: Female
  Weight: 90.7194 kg

DRUGS (6)
  1. EXTRA STRENGTH ESTROVEN [Suspect]
     Indication: PREMENSTRUAL SYNDROME
     Dosage: 2 TABS/DAY, ORAL
     Route: 048
     Dates: start: 20050510, end: 20050520
  2. FLUOXETINE [Concomitant]
  3. MULTI-VITAMIN [Concomitant]
  4. CALCIUM GLUCONATE [Concomitant]
  5. EVENING PRIMROSE OIL CAPSULES [Concomitant]
  6. LORATIDINE (GENERIC CLARITIN) [Concomitant]

REACTIONS (1)
  - TINNITUS [None]
